FAERS Safety Report 10095138 (Version 2)
Quarter: 2015Q3

REPORT INFORMATION
  Report Type: Spontaneous
  Country: US (occurrence: US)
  Receive Date: 20140422
  Receipt Date: 20150812
  Transmission Date: 20151125
  Serious: No
  Sender: FDA-Public Use
  Company Number: US-GILEAD-2012-0057820

PATIENT
  Age: 63 Year
  Sex: Female

DRUGS (11)
  1. LETAIRIS [Suspect]
     Active Substance: AMBRISENTAN
     Indication: PULMONARY HYPERTENSION
     Dosage: 5 MG, QD
     Route: 048
     Dates: start: 20120516, end: 20120629
  2. FOSAMAX [Concomitant]
     Active Substance: ALENDRONATE SODIUM
  3. LETAIRIS [Suspect]
     Active Substance: AMBRISENTAN
     Indication: BILIARY CIRRHOSIS PRIMARY
  4. REMODULIN [Concomitant]
     Active Substance: TREPROSTINIL
  5. PROTONIX [Concomitant]
     Active Substance: PANTOPRAZOLE SODIUM
  6. ZOFRAN [Concomitant]
     Active Substance: ONDANSETRON HYDROCHLORIDE
  7. MEVACOR [Concomitant]
     Active Substance: LOVASTATIN
  8. LASIX [Concomitant]
     Active Substance: FUROSEMIDE
  9. CIALIS [Concomitant]
     Active Substance: TADALAFIL
  10. ULTRAM [Concomitant]
     Active Substance: TRAMADOL HYDROCHLORIDE
  11. ACTIGALL [Concomitant]
     Active Substance: URSODIOL

REACTIONS (4)
  - Malaise [Unknown]
  - Pain [Unknown]
  - Fluid retention [Unknown]
  - Quality of life decreased [Unknown]
